FAERS Safety Report 12577442 (Version 4)
Quarter: 2016Q3

REPORT INFORMATION
  Report Type: Report from Study
  Country: TW (occurrence: TW)
  Receive Date: 20160720
  Receipt Date: 20160811
  Transmission Date: 20161109
  Serious: Yes (Hospitalization)
  Sender: FDA-Public Use
  Company Number: TW-ABBVIE-16K-153-1677442-00

PATIENT
  Age: 63 Year
  Sex: Female
  Weight: 63 kg

DRUGS (6)
  1. HUMIRA [Suspect]
     Active Substance: ADALIMUMAB
     Route: 058
     Dates: start: 20160620
  2. APO-TRAMADOL/ACET [Concomitant]
     Active Substance: ACETAMINOPHEN\TRAMADOL HYDROCHLORIDE
     Indication: POLYARTHRITIS
     Route: 048
     Dates: start: 20090107
  3. HYDROXYCHLOROQUINE [Concomitant]
     Active Substance: HYDROXYCHLOROQUINE
     Indication: POLYARTHRITIS
     Route: 048
     Dates: start: 20090107
  4. PREDNISOLONE. [Concomitant]
     Active Substance: PREDNISOLONE
     Indication: PRODUCT USED FOR UNKNOWN INDICATION
     Route: 048
     Dates: start: 20090107
  5. HUMIRA [Suspect]
     Active Substance: ADALIMUMAB
     Indication: RHEUMATOID ARTHRITIS
     Route: 058
     Dates: start: 20120423, end: 20160620
  6. ETORICOXIB [Concomitant]
     Active Substance: ETORICOXIB
     Indication: POLYARTHRITIS
     Route: 048
     Dates: start: 20090107

REACTIONS (6)
  - Hemiparesis [Unknown]
  - Lumbar vertebral fracture [Recovering/Resolving]
  - Ischaemic stroke [Recovering/Resolving]
  - Hypoaesthesia [Unknown]
  - Post procedural stroke [Recovering/Resolving]
  - Hemiparesis [Recovering/Resolving]

NARRATIVE: CASE EVENT DATE: 2016
